FAERS Safety Report 25024040 (Version 1)
Quarter: 2025Q1

REPORT INFORMATION
  Report Type: Spontaneous
  Country: FR (occurrence: FR)
  Receive Date: 20250228
  Receipt Date: 20250228
  Transmission Date: 20250408
  Serious: Yes (Hospitalization)
  Sender: FRESENIUS KABI
  Company Number: None

PATIENT
  Age: 78 Year
  Sex: Male
  Weight: 63 kg

DRUGS (19)
  1. LIDOCAINE [Suspect]
     Active Substance: LIDOCAINE
     Indication: Angiocardiogram
     Route: 058
     Dates: start: 20250113, end: 20250113
  2. LIDOCAINE [Suspect]
     Active Substance: LIDOCAINE
     Route: 058
     Dates: start: 20250115, end: 20250115
  3. LIDOCAINE [Suspect]
     Active Substance: LIDOCAINE
     Indication: Product used for unknown indication
     Route: 058
     Dates: start: 20250113, end: 20250113
  4. LIDOCAINE [Suspect]
     Active Substance: LIDOCAINE
     Route: 058
     Dates: start: 20250115, end: 20250115
  5. TICAGRELOR [Suspect]
     Active Substance: TICAGRELOR
     Indication: Myocardial infarction
     Dosage: 2 DOSAGE FORM, QD?FOA: FILM-COATED TABLET
     Route: 048
     Dates: start: 20250113, end: 20250117
  6. VISIPAQUE [Suspect]
     Active Substance: IODIXANOL
     Indication: Angiocardiogram
     Route: 013
     Dates: start: 20250113, end: 20250113
  7. VISIPAQUE [Suspect]
     Active Substance: IODIXANOL
     Route: 013
     Dates: start: 20250115, end: 20250115
  8. PROTAMINE [Suspect]
     Active Substance: PROTAMINE
     Indication: Angiocardiogram
     Route: 042
     Dates: start: 20250115, end: 20250115
  9. KARDEGIC [Suspect]
     Active Substance: ASPIRIN DL-LYSINE
     Indication: Myocardial infarction
     Dosage: 1 DOSAGE FORM, QD,~POWDER FOR ORAL SOLUTION
     Route: 048
     Dates: start: 20250113, end: 20250122
  10. PERINDOPRIL [Suspect]
     Active Substance: PERINDOPRIL
     Indication: Hypertension
     Dosage: 2.5 MILLIGRAM, QD
     Route: 048
     Dates: start: 20250114, end: 20250120
  11. ATORVASTATIN [Suspect]
     Active Substance: ATORVASTATIN
     Indication: Prophylaxis
     Dosage: 80 MILLIGRAM, QD
     Route: 048
     Dates: start: 20250113, end: 20250120
  12. VERAPAMIL HYDROCHLORIDE [Concomitant]
     Active Substance: VERAPAMIL HYDROCHLORIDE
     Indication: Product used for unknown indication
     Route: 013
     Dates: start: 20250113, end: 20250113
  13. ISOSORBIDE [Concomitant]
     Active Substance: ISOSORBIDE
     Indication: Product used for unknown indication
     Route: 013
     Dates: start: 20250113, end: 20250113
  14. LANSOPRAZOLE [Concomitant]
     Active Substance: LANSOPRAZOLE
     Indication: Product used for unknown indication
     Dosage: 15 MILLIGRAM, QD?FOA: UNKNOWN
     Route: 048
     Dates: start: 20250115, end: 20250122
  15. BISOPROLOL FUMARATE [Concomitant]
     Active Substance: BISOPROLOL FUMARATE
     Indication: Product used for unknown indication
     Dosage: 5 MILLIGRAM, QD?FOA: UNKNOWN
     Route: 048
  16. ASPIRIN DL-LYSINE [Concomitant]
     Active Substance: ASPIRIN DL-LYSINE
     Indication: Product used for unknown indication
     Dosage: 250 MILLIGRAM, QD?FOA: UNKNOWN
     Route: 042
     Dates: start: 20250113, end: 20250113
  17. RAMIPRIL [Concomitant]
     Active Substance: RAMIPRIL
     Indication: Product used for unknown indication
     Dosage: 2.5 MILLIGRAM, QD?FOA: UNKNOWN
     Route: 048
     Dates: start: 20250113, end: 20250114
  18. HEPARIN SODIUM [Concomitant]
     Active Substance: HEPARIN SODIUM
     Indication: Product used for unknown indication
     Route: 013
     Dates: start: 20250113, end: 20250113
  19. HEPARIN SODIUM [Concomitant]
     Active Substance: HEPARIN SODIUM
     Route: 042
     Dates: start: 20250113, end: 20250113

REACTIONS (2)
  - Rash [Recovering/Resolving]
  - Eosinophilia [Not Recovered/Not Resolved]

NARRATIVE: CASE EVENT DATE: 20250115
